FAERS Safety Report 8404896-8 (Version None)
Quarter: 2012Q2

REPORT INFORMATION
  Report Type: 
  Country: None (occurrence: None)
  Receive Date: 20120601
  Receipt Date: 20120125
  Transmission Date: 20120825
  Serious: No
  Sender: FDA-Public Use
  Company Number: US-ASTRAZENECA-2012SE05677

PATIENT
  Age: 48 Year
  Sex: Female
  Weight: 136.1 kg

DRUGS (5)
  1. ATACAND HCT [Suspect]
     Dosage: 16/12.5 MG, ONE TABLET ONCE DAILY
     Route: 048
  2. SEROQUEL XR [Suspect]
     Indication: POST-TRAUMATIC STRESS DISORDER
     Route: 048
  3. SEROQUEL XR [Suspect]
     Indication: DEPRESSION
     Route: 048
  4. SEROQUEL XR [Suspect]
     Indication: ANXIETY
     Route: 048
  5. SEROQUEL XR [Suspect]
     Indication: BIPOLAR I DISORDER
     Route: 048

REACTIONS (4)
  - ASTHENIA [None]
  - AFFECT LABILITY [None]
  - FEELING ABNORMAL [None]
  - DRUG DOSE OMISSION [None]
